FAERS Safety Report 4873255-7 (Version None)
Quarter: 2006Q1

REPORT INFORMATION
  Report Type: 
  Country: None (occurrence: None)
  Receive Date: 20060105
  Receipt Date: 20050627
  Transmission Date: 20060701
  Serious: Yes (Hospitalization)
  Sender: FDA-Public Use
  Company Number: PHRM2005FR01964

PATIENT
  Age: 92 Year
  Sex: Male

DRUGS (10)
  1. AREDIA [Suspect]
     Indication: METASTASES TO BONE
     Route: 042
     Dates: end: 20050105
  2. LASILIX [Suspect]
     Dosage: 1 DF, QD
     Route: 048
  3. LEUPROLIDE ACETATE [Suspect]
     Indication: PROSTATE CANCER
     Route: 058
     Dates: end: 20041222
  4. CYANOCOBALAMIN [Concomitant]
     Indication: PERNICIOUS ANAEMIA
     Dosage: 1 DF, QMO
     Route: 030
  5. DURAGESIC-100 [Concomitant]
     Indication: BONE MARROW TUMOUR CELL INFILTRATION
  6. MORPHINE SULFATE [Concomitant]
     Indication: BONE MARROW TUMOUR CELL INFILTRATION
     Dosage: 2 DF, QD
  7. LANSOYL [Concomitant]
  8. PREVISCAN [Concomitant]
  9. MOTILIUM [Concomitant]
  10. ADANCOR [Concomitant]

REACTIONS (4)
  - OEDEMA [None]
  - PRURITUS [None]
  - RASH PAPULAR [None]
  - RASH PUSTULAR [None]
